FAERS Safety Report 16115743 (Version 1)
Quarter: 2019Q1

REPORT INFORMATION
  Report Type: Spontaneous
  Country: FR (occurrence: FR)
  Receive Date: 20190326
  Receipt Date: 20190326
  Transmission Date: 20190418
  Serious: Yes (Hospitalization, Other)
  Sender: FDA-Public Use
  Company Number: FR-SUN PHARMACEUTICAL INDUSTRIES LTD-2019RR-202838

PATIENT
  Age: 26 Year
  Sex: Male

DRUGS (11)
  1. PARACETAMOL [Suspect]
     Active Substance: ACETAMINOPHEN
     Indication: HYPERHIDROSIS
     Dosage: UNK
     Route: 048
     Dates: start: 20130313
  2. NUROFEN [Suspect]
     Active Substance: IBUPROFEN
     Indication: MYALGIA
     Dosage: UNK
     Route: 048
     Dates: start: 20130313
  3. NUROFEN [Suspect]
     Active Substance: IBUPROFEN
     Indication: PYREXIA
  4. NUROFEN [Suspect]
     Active Substance: IBUPROFEN
     Indication: FATIGUE
  5. NUROFEN [Suspect]
     Active Substance: IBUPROFEN
     Indication: CHILLS
  6. NUROFEN [Suspect]
     Active Substance: IBUPROFEN
     Indication: INFLUENZA LIKE ILLNESS
     Dosage: UNK
     Route: 048
     Dates: start: 20130313, end: 20130314
  7. PARACETAMOL [Suspect]
     Active Substance: ACETAMINOPHEN
     Indication: MYALGIA
  8. PARACETAMOL [Suspect]
     Active Substance: ACETAMINOPHEN
     Indication: FATIGUE
  9. NUROFEN [Suspect]
     Active Substance: IBUPROFEN
     Indication: HYPERHIDROSIS
  10. PARACETAMOL [Suspect]
     Active Substance: ACETAMINOPHEN
     Indication: PYREXIA
  11. PARACETAMOL [Suspect]
     Active Substance: ACETAMINOPHEN
     Indication: CHILLS

REACTIONS (4)
  - Arthralgia [Recovered/Resolved]
  - Vascular purpura [Recovered/Resolved]
  - Rash erythematous [Recovered/Resolved]
  - Oedema peripheral [Recovered/Resolved]

NARRATIVE: CASE EVENT DATE: 20130314
